FAERS Safety Report 9752197 (Version 2)
Quarter: 2013Q4

REPORT INFORMATION
  Report Type: Spontaneous
  Country: ES (occurrence: None)
  Receive Date: 20131211
  Receipt Date: 20131224
  Transmission Date: 20140711
  Serious: Yes (Other)
  Sender: FDA-Public Use
  Company Number: DEP_01296_2013

PATIENT
  Sex: Female

DRUGS (8)
  1. PECFENT [Suspect]
     Indication: CANCER PAIN
     Dosage: 100 MCG/1BOTTLE; 400 MCG)
  2. METHADONE HYDROCHLORIDE [Suspect]
     Indication: PRODUCT USED FOR UNKNOWN INDICATION
  3. LYRICA [Concomitant]
  4. FORTECORTIN [Concomitant]
  5. OMEPRAZOLE [Concomitant]
  6. LORAZEPAM [Concomitant]
  7. NOLOTIL [Concomitant]
  8. CLEXANE [Concomitant]

REACTIONS (4)
  - Medication error [None]
  - Incorrect dose administered [None]
  - Neurotoxicity [None]
  - Overdose [None]
